FAERS Safety Report 6214071-3 (Version None)
Quarter: 2009Q2

REPORT INFORMATION
  Report Type: 
  Country: None (occurrence: None)
  Receive Date: 20090604
  Receipt Date: 20090531
  Transmission Date: 20091009
  Serious: Yes (Hospitalization, Other)
  Sender: FDA-Public Use
  Company Number: DE-JNJFOC-20090205674

PATIENT
  Sex: Female

DRUGS (16)
  1. CONCERTA [Suspect]
     Route: 048
  2. CONCERTA [Suspect]
     Indication: DRUG USE FOR UNKNOWN INDICATION
     Route: 048
  3. ENOXAPARIN SODIUM [Suspect]
     Route: 058
  4. ENOXAPARIN SODIUM [Suspect]
     Indication: DRUG USE FOR UNKNOWN INDICATION
     Route: 058
  5. IBUPROFEN [Suspect]
     Route: 048
  6. IBUPROFEN [Suspect]
     Indication: DRUG USE FOR UNKNOWN INDICATION
     Route: 048
  7. LAMOTRIGIN [Suspect]
     Route: 048
  8. LAMOTRIGIN [Suspect]
     Indication: DRUG USE FOR UNKNOWN INDICATION
     Route: 048
  9. NOVALGIN [Suspect]
     Route: 048
  10. NOVALGIN [Suspect]
     Indication: DRUG USE FOR UNKNOWN INDICATION
     Route: 048
  11. PANTOZOL [Suspect]
     Route: 048
  12. PANTOZOL [Suspect]
     Indication: DRUG USE FOR UNKNOWN INDICATION
     Route: 048
  13. TRAMAL LONG [Suspect]
     Dosage: SEVEN TABLETS OVER A TIME PERIOD FROM 8 HOURS ( 700 MG)
     Route: 048
  14. TRAMAL LONG [Suspect]
     Indication: DRUG USE FOR UNKNOWN INDICATION
     Route: 048
  15. VENLAFAXINE HCL [Suspect]
     Route: 048
  16. VENLAFAXINE HCL [Suspect]
     Indication: DRUG USE FOR UNKNOWN INDICATION
     Dosage: 50 MG TABLET IN THE MORNING ANG 1.5 TABLETS AT NOON
     Route: 048

REACTIONS (3)
  - MULTIPLE DRUG OVERDOSE [None]
  - SUBSTANCE ABUSE [None]
  - TACHYCARDIA [None]
